FAERS Safety Report 12249321 (Version 2)
Quarter: 2016Q2

REPORT INFORMATION
  Report Type: Spontaneous
  Country: CN (occurrence: CN)
  Receive Date: 20160408
  Receipt Date: 20160413
  Transmission Date: 20160815
  Serious: No
  Sender: FDA-Public Use
  Company Number: CN-SA-2016SA070186

PATIENT
  Age: 44 Year
  Sex: Female

DRUGS (9)
  1. GEMCITABINE [Suspect]
     Active Substance: GEMCITABINE\GEMCITABINE HYDROCHLORIDE
     Indication: INVASIVE DUCTAL BREAST CARCINOMA
     Dosage: DAYS 1 AND 8, EVERY 3 WEEKS FOR 2 CYCLES
     Route: 065
     Dates: start: 201310
  2. CARBOPLATIN. [Suspect]
     Active Substance: CARBOPLATIN
     Indication: INVASIVE DUCTAL BREAST CARCINOMA
     Dosage: DAY 1, EVERY 3 WEEKS
     Route: 065
  3. VINORELBINE [Suspect]
     Active Substance: VINORELBINE\VINORELBINE TARTRATE
     Indication: INVASIVE DUCTAL BREAST CARCINOMA
     Dosage: DAYS 1 AND 8, EVERY 3 WEEKS
     Route: 065
  4. CISPLATIN. [Concomitant]
     Active Substance: CISPLATIN
     Dosage: INTRACAVITARY; ADMINISTERED 3 TIMES
  5. CARBOPLATIN. [Suspect]
     Active Substance: CARBOPLATIN
     Indication: INVASIVE DUCTAL BREAST CARCINOMA
     Dosage: DAY 1, EVERY 3 WEEKS
     Route: 065
  6. CISPLATIN. [Concomitant]
     Active Substance: CISPLATIN
     Dosage: INTRAPERITONEAL
  7. CISPLATIN. [Concomitant]
     Active Substance: CISPLATIN
     Dosage: INTRATHORACIC
  8. DOCETAXEL. [Suspect]
     Active Substance: DOCETAXEL
     Indication: INVASIVE DUCTAL BREAST CARCINOMA
     Dosage: DAY 1, EVERY 3 WEEKS FOR 2 CYCLES
     Route: 065
     Dates: start: 201310
  9. VINORELBINE [Suspect]
     Active Substance: VINORELBINE\VINORELBINE TARTRATE
     Indication: INVASIVE DUCTAL BREAST CARCINOMA
     Dosage: DAYS 1 AND 8, EVERY 3 WEEKS
     Route: 065

REACTIONS (1)
  - No adverse event [Unknown]

NARRATIVE: CASE EVENT DATE: 2014
